FAERS Safety Report 5194201-5 (Version None)
Quarter: 2006Q4

REPORT INFORMATION
  Report Type: 
  Country: None (occurrence: None)
  Receive Date: 20061222
  Receipt Date: 20061213
  Transmission Date: 20070319
  Serious: Yes (Death)
  Sender: FDA-Public Use
  Company Number: 231350

PATIENT
  Age: 41 Year
  Sex: Female

DRUGS (18)
  1. RITUXIMAB (RITUXIMAB)CONC FOR SOLUTION FOR INFUSION [Suspect]
     Indication: RHEUMATOID ARTHRITIS
     Dosage: 1000 MG, DAYS 1+15, INTRAVENOUS
     Route: 042
     Dates: start: 20041020
  2. METHYLPREDNISOLONE [Suspect]
     Indication: RHEUMATOID ARTHRITIS
     Dosage: 100 MG, DAYS 1+15, INTRAVENOUS
     Route: 042
     Dates: start: 20041020
  3. PREDNISONE TAB [Suspect]
     Indication: RHEUMATOID ARTHRITIS
     Dosage: SEE IMAGE, ORAL
     Route: 048
     Dates: start: 20041020
  4. METHOTREXATE [Concomitant]
  5. NAPROXEN [Concomitant]
  6. FOLIC ACID [Concomitant]
  7. TYLENOL #4 (ACETAMINOPHEN, CODEINE PHOSPHATE) [Concomitant]
  8. LORTAB [Concomitant]
  9. DARVOCET-N 100 (ACETAMINOPHEN, PROPOXYPHENE NAPSYLATE) [Concomitant]
  10. OXYCODONE HCL [Concomitant]
  11. SYNTHROID [Concomitant]
  12. IRON (IRON NOS) [Concomitant]
  13. MULTIVITAMIN (MULTIVITAMINS NOS) [Concomitant]
  14. PAXIL [Concomitant]
  15. ASPIRIN [Concomitant]
  16. SOMA [Concomitant]
  17. PEPCID AC [Concomitant]
  18. CLARITIN [Concomitant]

REACTIONS (16)
  - ALANINE AMINOTRANSFERASE DECREASED [None]
  - ASPARTATE AMINOTRANSFERASE INCREASED [None]
  - B-LYMPHOCYTE COUNT DECREASED [None]
  - BLOOD ALKALINE PHOSPHATASE INCREASED [None]
  - BLOOD BILIRUBIN DECREASED [None]
  - BLOOD CALCIUM INCREASED [None]
  - BLOOD CHLORIDE DECREASED [None]
  - BLOOD CHOLESTEROL INCREASED [None]
  - BLOOD IMMUNOGLOBULIN M DECREASED [None]
  - BLOOD LACTATE DEHYDROGENASE DECREASED [None]
  - HYPOTHYROIDISM [None]
  - INFLAMMATION [None]
  - NECROSIS [None]
  - NEUTROPHIL COUNT INCREASED [None]
  - PLATELET COUNT INCREASED [None]
  - VIRAL MYOCARDITIS [None]
